FAERS Safety Report 9378040 (Version 1)
Quarter: 2013Q3

REPORT INFORMATION
  Report Type: Spontaneous
  Country: US (occurrence: US)
  Receive Date: 20130701
  Receipt Date: 20130701
  Transmission Date: 20140515
  Serious: Yes (Hospitalization, Other)
  Sender: FDA-Public Use
  Company Number: US-GLAXOSMITHKLINE-A0837519A

PATIENT
  Age: 53 Year
  Sex: Male
  Weight: 106.8 kg

DRUGS (1)
  1. AVANDIA [Suspect]
     Indication: DIABETES MELLITUS
     Route: 048
     Dates: start: 200506, end: 200812

REACTIONS (3)
  - Cerebrovascular accident [Unknown]
  - Transient ischaemic attack [Unknown]
  - Arteriosclerosis coronary artery [Unknown]
